FAERS Safety Report 4545316-3 (Version None)
Quarter: 2005Q1

REPORT INFORMATION
  Report Type: 
  Country: None (occurrence: None)
  Receive Date: 20050103
  Receipt Date: 20041222
  Transmission Date: 20050727
  Serious: Yes (Death)
  Sender: FDA-Public Use
  Company Number: 2004104327

PATIENT
  Age: 65 Year
  Sex: Male

DRUGS (3)
  1. ATARAX [Suspect]
     Indication: ILL-DEFINED DISORDER
  2. HYOSCINE HBR HYT [Suspect]
     Indication: ILL-DEFINED DISORDER
  3. ETHANOL (ETHANOL) [Suspect]
     Indication: ILL-DEFINED DISORDER

REACTIONS (4)
  - ALCOHOL USE [None]
  - LOSS OF CONSCIOUSNESS [None]
  - ORAL INTAKE REDUCED [None]
  - SHOCK [None]
